FAERS Safety Report 19839749 (Version 1)
Quarter: 2021Q3

REPORT INFORMATION
  Report Type: Spontaneous
  Country: US (occurrence: US)
  Receive Date: 20210916
  Receipt Date: 20210916
  Transmission Date: 20211014
  Serious: No
  Sender: FDA-Public Use
  Company Number: US-BSC-2021000052

PATIENT
  Age: 84 Year
  Sex: Male
  Weight: 88.45 kg

DRUGS (5)
  1. LOTREL [Concomitant]
     Active Substance: AMLODIPINE BESYLATE\BENAZEPRIL HYDROCHLORIDE
  2. ASPIRIN. [Concomitant]
     Active Substance: ASPIRIN
  3. ELIQUIS [Concomitant]
     Active Substance: APIXABAN
     Dates: end: 20210427
  4. VARITHENA [Suspect]
     Active Substance: POLIDOCANOL
     Dates: start: 20210415, end: 20210415
  5. CILOSTAZOL. [Concomitant]
     Active Substance: CILOSTAZOL

REACTIONS (2)
  - Deep vein thrombosis [Unknown]
  - Oedema peripheral [Unknown]

NARRATIVE: CASE EVENT DATE: 20210427
